FAERS Safety Report 21297021 (Version 1)
Quarter: 2022Q3

REPORT INFORMATION
  Report Type: Other
  Country: JP (occurrence: JP)
  Receive Date: 20220906
  Receipt Date: 20220906
  Transmission Date: 20221027
  Serious: Yes (Hospitalization, Other)
  Sender: FDA-Public Use
  Company Number: JP-CHUGAI-A2021014059ROCHE

PATIENT
  Age: 78 Year
  Sex: Male
  Weight: 51.8 kg

DRUGS (17)
  1. ATEZOLIZUMAB [Suspect]
     Active Substance: ATEZOLIZUMAB
     Indication: Non-small cell lung cancer
     Route: 041
     Dates: start: 20201126, end: 20201128
  2. ATEZOLIZUMAB [Suspect]
     Active Substance: ATEZOLIZUMAB
     Route: 041
     Dates: start: 20210218, end: 20210312
  3. ATEZOLIZUMAB [Suspect]
     Active Substance: ATEZOLIZUMAB
     Route: 041
     Dates: start: 20210409, end: 20210427
  4. ATEZOLIZUMAB [Suspect]
     Active Substance: ATEZOLIZUMAB
     Route: 041
     Dates: start: 20210827, end: 20220603
  5. BEVACIZUMAB [Suspect]
     Active Substance: BEVACIZUMAB
     Indication: Non-small cell lung cancer
     Dosage: SINGLE
     Route: 041
     Dates: start: 20201126, end: 20201126
  6. BEVACIZUMAB [Suspect]
     Active Substance: BEVACIZUMAB
     Dosage: SINGLE
     Route: 041
     Dates: start: 20201217, end: 20201217
  7. BEVACIZUMAB [Suspect]
     Active Substance: BEVACIZUMAB
     Route: 041
     Dates: start: 20210107, end: 20210128
  8. BEVACIZUMAB [Suspect]
     Active Substance: BEVACIZUMAB
     Route: 041
     Dates: start: 20210218, end: 20210312
  9. BEVACIZUMAB [Suspect]
     Active Substance: BEVACIZUMAB
     Route: 041
     Dates: start: 20210409, end: 20210427
  10. BEVACIZUMAB [Suspect]
     Active Substance: BEVACIZUMAB
     Route: 041
     Dates: start: 20210827, end: 20220125
  11. BEVACIZUMAB [Suspect]
     Active Substance: BEVACIZUMAB
     Route: 041
     Dates: start: 20220215, end: 20220329
  12. CARBOPLATIN [Suspect]
     Active Substance: CARBOPLATIN
     Indication: Non-small cell lung cancer
     Dosage: SINGLE
     Route: 041
     Dates: start: 20201126, end: 20201126
  13. CARBOPLATIN [Suspect]
     Active Substance: CARBOPLATIN
     Dosage: SINGLE
     Route: 041
     Dates: start: 20201217, end: 20201217
  14. CARBOPLATIN [Suspect]
     Active Substance: CARBOPLATIN
     Route: 041
     Dates: start: 20210107, end: 20210128
  15. PACLITAXEL [Suspect]
     Active Substance: PACLITAXEL
     Indication: Non-small cell lung cancer
     Dosage: SINGLE
     Route: 041
     Dates: start: 20201126, end: 20201126
  16. PACLITAXEL [Suspect]
     Active Substance: PACLITAXEL
     Dosage: SINGLE
     Route: 041
     Dates: start: 20201217, end: 20201217
  17. PACLITAXEL [Suspect]
     Active Substance: PACLITAXEL
     Route: 041
     Dates: start: 20210107, end: 20210128

REACTIONS (5)
  - Pneumonia [Recovering/Resolving]
  - Normocytic anaemia [Recovering/Resolving]
  - Neutrophil count decreased [Recovered/Resolved]
  - Hyponatraemia [Recovered/Resolved]
  - Neuropathy peripheral [Recovered/Resolved]

NARRATIVE: CASE EVENT DATE: 20201129
